FAERS Safety Report 6173772-6 (Version None)
Quarter: 2009Q2

REPORT INFORMATION
  Report Type: 
  Country: None (occurrence: None)
  Receive Date: 20090429
  Receipt Date: 20090429
  Transmission Date: 20091009
  Serious: No
  Sender: FDA-Public Use
  Company Number: None

PATIENT
  Age: 64 Year
  Sex: Male
  Weight: 95.2554 kg

DRUGS (1)
  1. DIGOXIN [Suspect]
     Dosage: 0.25 1 A DAY
     Dates: start: 19980101

REACTIONS (2)
  - DIZZINESS [None]
  - NAUSEA [None]
